FAERS Safety Report 21209466 (Version 1)
Quarter: 2022Q3

REPORT INFORMATION
  Report Type: Spontaneous
  Country: CA (occurrence: None)
  Receive Date: 20220813
  Receipt Date: 20220813
  Transmission Date: 20221027
  Serious: Yes (Congenital Anomaly, Other)
  Sender: FDA-Public Use
  Company Number: 2022A280543

PATIENT
  Age: 68 Year
  Sex: Female

DRUGS (2)
  1. ROSUVASTATIN [Interacting]
     Active Substance: ROSUVASTATIN
     Indication: Low density lipoprotein increased
     Route: 048
  2. LEVOTHYROXINE [Interacting]
     Active Substance: LEVOTHYROXINE
     Route: 065
     Dates: start: 200610

REACTIONS (2)
  - Drug interaction [Unknown]
  - Trimethylaminuria [Recovered/Resolved]
